FAERS Safety Report 9306716 (Version 2)
Quarter: 2014Q1

REPORT INFORMATION
  Report Type: Report from Study
  Country: US (occurrence: US)
  Receive Date: 20130523
  Receipt Date: 20140326
  Transmission Date: 20141002
  Serious: Yes (Hospitalization)
  Sender: FDA-Public Use
  Company Number: US-ALEXION-A201300889

PATIENT
  Sex: 0

DRUGS (3)
  1. SOLIRIS [Suspect]
     Indication: PAROXYSMAL NOCTURNAL HAEMOGLOBINURIA
     Dosage: 1200 MG, Q2W
     Route: 042
     Dates: start: 201211
  2. MENINGOCOCCAL VACCINE [Concomitant]
     Indication: IMMUNISATION
     Dosage: UNK
     Route: 065
     Dates: start: 20130117, end: 20130117
  3. HEPARIN [Concomitant]
     Indication: PRODUCT USED FOR UNKNOWN INDICATION
     Route: 065

REACTIONS (9)
  - Aplastic anaemia [Unknown]
  - Cerebral venous thrombosis [Unknown]
  - Papilloedema [Unknown]
  - Intracranial pressure increased [Unknown]
  - Exposure during pregnancy [Not Recovered/Not Resolved]
  - Headache [Unknown]
  - Visual impairment [Unknown]
  - Abdominal pain [Unknown]
  - Haemoglobinuria [Unknown]
